FAERS Safety Report 8165817 (Version 12)
Quarter: 2012Q4

REPORT INFORMATION
  Report Type: Spontaneous
  Country: US (occurrence: None)
  Receive Date: 20110916
  Receipt Date: 20120920
  Transmission Date: 20130627
  Serious: Yes (Other)
  Sender: FDA-Public Use
  Company Number: 2011P1008666

PATIENT
  Age: 55 Year
  Sex: Female
  Weight: 77.11 kg

DRUGS (6)
  1. TERCONAZOLE [Suspect]
     Indication: VULVOVAGINAL MYCOTIC INFECTION
     Dosage: 1 APPLICATOR; QHS
     Route: 067
     Dates: start: 20110801, end: 201108
  2. PEPTO-BISMOL [Suspect]
     Indication: ABDOMINAL PAIN UPPER
  3. MONOPRIL [Concomitant]
  4. PRILOSEC [Concomitant]
  5. XANAX [Concomitant]
  6. PREDNISONE [Suspect]

REACTIONS (14)
  - Pruritus [None]
  - Erythema [None]
  - Burns second degree [None]
  - Rash [None]
  - Sensory disturbance [None]
  - Face oedema [None]
  - Local swelling [None]
  - Urticaria [None]
  - Cough [None]
  - Abdominal pain upper [None]
  - Diarrhoea [None]
  - Anxiety [None]
  - Hypersensitivity [None]
  - Dry skin [None]
